FAERS Safety Report 7474190-0 (Version None)
Quarter: 2011Q2

REPORT INFORMATION
  Report Type: 
  Country: None (occurrence: None)
  Receive Date: 20110511
  Receipt Date: 20110510
  Transmission Date: 20111010
  Serious: Yes (Congenital Anomaly)
  Sender: FDA-Public Use
  Company Number: FR-ABBOTT-11P-056-0709458-00

PATIENT

DRUGS (7)
  1. KALETRA [Suspect]
     Indication: DRUG EXPOSURE DURING PREGNANCY
     Route: 064
  2. TENOFOVIR DISOPROXIL FUMARATE [Suspect]
     Indication: DRUG EXPOSURE DURING PREGNANCY
     Route: 064
  3. LAMIVUDINE (EPIVIR HBV) [Suspect]
     Indication: PROPHYLAXIS AGAINST HIV INFECTION
  4. SAQUINAVIR [Suspect]
     Indication: DRUG EXPOSURE DURING PREGNANCY
     Route: 064
  5. KALETRA [Suspect]
     Indication: PROPHYLAXIS AGAINST HIV INFECTION
  6. AZT [Suspect]
     Indication: DRUG EXPOSURE DURING PREGNANCY
     Route: 064
  7. AZT [Suspect]
     Indication: PROPHYLAXIS AGAINST HIV INFECTION

REACTIONS (6)
  - GASTROINTESTINAL DISORDER [None]
  - UMBILICAL HERNIA [None]
  - OVERDOSE [None]
  - DRUG LEVEL INCREASED [None]
  - DRUG EXPOSURE DURING PREGNANCY [None]
  - DEVELOPMENTAL DELAY [None]
